FAERS Safety Report 9720699 (Version 27)
Quarter: 2018Q4

REPORT INFORMATION
  Report Type: Report from Study
  Country: BR (occurrence: BR)
  Receive Date: 20131129
  Receipt Date: 20181203
  Transmission Date: 20190205
  Serious: Yes (Life-Threatening, Hospitalization, Other)
  Sender: FDA-Public Use
  Company Number: PHHY2013BR137952

PATIENT
  Age: 75 Year
  Sex: Female
  Weight: 50 kg

DRUGS (12)
  1. SANDOSTATIN LAR DEPOT [Suspect]
     Active Substance: OCTREOTIDE ACETATE
     Indication: CARCINOID TUMOUR OF THE PANCREAS
  2. ALENDRONATE SODIUM. [Concomitant]
     Active Substance: ALENDRONATE SODIUM
     Indication: BONE DISORDER
     Dosage: UNK UKN, QW EVERY FRIDAY
     Route: 065
  3. PROTOS (STRONTIUM RANELATE) [Concomitant]
     Active Substance: STRONTIUM RANELATE
     Indication: PRODUCT USED FOR UNKNOWN INDICATION
     Route: 065
  4. SIMVASTATIN. [Concomitant]
     Active Substance: SIMVASTATIN
     Indication: BLOOD CHOLESTEROL ABNORMAL
     Dosage: 1 DF, QD
     Route: 065
  5. DENYL//CITALOPRAM HYDROBROMIDE [Concomitant]
     Active Substance: CITALOPRAM HYDROBROMIDE
     Indication: PRODUCT USED FOR UNKNOWN INDICATION
     Dosage: 1 DF, QD AT BREAKFAST
     Route: 048
  6. FENOBARBITAL [Concomitant]
     Active Substance: PHENOBARBITAL
     Indication: APPETITE DISORDER
     Dosage: 1 DF, QD
     Route: 065
  7. CALCIUM AND VITAMIN D3 [Concomitant]
     Active Substance: CALCIUM\CHOLECALCIFEROL
     Indication: OSTEOPOROSIS
     Dosage: 1 DF, QD
     Route: 048
  8. ALOIS [Concomitant]
     Active Substance: MEMANTINE
     Indication: DEMENTIA
     Dosage: 1 DF, QD
     Route: 048
  9. GLUCERNA//NUTRIENTS NOS [Concomitant]
     Indication: APPETITE DISORDER
     Dosage: 1 DF, QD
     Route: 048
  10. OSCAL [Concomitant]
     Active Substance: CALCIUM CARBONATE
     Indication: BONE DISORDER
     Dosage: UNK, BID AT BREAKFAST AND AT NIGHT
     Route: 065
  11. ALOIS [Concomitant]
     Active Substance: MEMANTINE
     Indication: MEMORY IMPAIRMENT
  12. SANDOSTATIN LAR DEPOT [Suspect]
     Active Substance: OCTREOTIDE ACETATE
     Indication: PANCREATIC NEUROENDOCRINE TUMOUR
     Dosage: 30 MG, QMO/EVERY 28 DAYS
     Route: 030
     Dates: start: 2007

REACTIONS (48)
  - Weight decreased [Recovered/Resolved]
  - Varicose vein [Unknown]
  - Malaise [Not Recovered/Not Resolved]
  - Needle issue [Unknown]
  - Pain in extremity [Recovered/Resolved]
  - Cerebrovascular accident [Recovered/Resolved]
  - Swelling face [Unknown]
  - Post procedural complication [Unknown]
  - Face injury [Recovered/Resolved]
  - Anxiety [Unknown]
  - Pancreatic neuroendocrine tumour [Recovering/Resolving]
  - Amnesia [Recovered/Resolved]
  - Mental disorder [Unknown]
  - Eye injury [Recovering/Resolving]
  - Eye disorder [Recovering/Resolving]
  - Ageusia [Recovering/Resolving]
  - Limb discomfort [Not Recovered/Not Resolved]
  - General physical health deterioration [Not Recovered/Not Resolved]
  - Hypoacusis [Unknown]
  - Anosmia [Unknown]
  - Skin atrophy [Not Recovered/Not Resolved]
  - Coma [Recovered/Resolved]
  - Deafness [Unknown]
  - Daydreaming [Unknown]
  - Weight increased [Not Recovered/Not Resolved]
  - Gait disturbance [Not Recovered/Not Resolved]
  - Decreased appetite [Recovered/Resolved]
  - Head injury [Unknown]
  - Fall [Recovered/Resolved]
  - Speech disorder [Unknown]
  - Visual impairment [Unknown]
  - Pain in extremity [Unknown]
  - Irritability [Unknown]
  - Memory impairment [Not Recovered/Not Resolved]
  - Blood cholesterol increased [Recovering/Resolving]
  - Lower limb fracture [Recovered/Resolved]
  - Hypertension [Recovering/Resolving]
  - Malignant neoplasm progression [Recovering/Resolving]
  - Diabetes mellitus [Recovering/Resolving]
  - Sleep disorder [Unknown]
  - Erythema [Unknown]
  - Dysstasia [Unknown]
  - Swelling [Unknown]
  - Arthralgia [Recovered/Resolved]
  - Fall [Recovered/Resolved]
  - Aneurysm [Recovered/Resolved]
  - Eating disorder [Recovering/Resolving]
  - Injection site pain [Unknown]

NARRATIVE: CASE EVENT DATE: 20081118
